FAERS Safety Report 13094865 (Version 1)
Quarter: 2017Q1

REPORT INFORMATION
  Report Type: Spontaneous
  Country: BR (occurrence: BR)
  Receive Date: 20170106
  Receipt Date: 20170106
  Transmission Date: 20170428
  Serious: Yes (Death, Other)
  Sender: FDA-Public Use
  Company Number: BR-ABBVIE-16P-020-1641374-00

PATIENT
  Age: 12 Year
  Sex: Female
  Weight: 14 kg

DRUGS (5)
  1. DEPAKENE [Suspect]
     Active Substance: VALPROIC ACID
     Indication: PARTIAL SEIZURES
     Route: 048
  2. DEPAKENE [Suspect]
     Active Substance: VALPROIC ACID
     Route: 048
  3. ATENOLOL. [Concomitant]
     Active Substance: ATENOLOL
     Indication: HYPERTENSION
     Route: 048
     Dates: start: 201604
  4. DIOVAN AMLO [Concomitant]
     Active Substance: AMLODIPINE\VALSARTAN
     Indication: HYPERTENSION
     Route: 048
  5. GARDENAL [Concomitant]
     Active Substance: PHENOBARBITAL
     Indication: SEIZURE
     Route: 048

REACTIONS (7)
  - Aortic stenosis [Unknown]
  - Product difficult to swallow [Not Recovered/Not Resolved]
  - Acute respiratory failure [Fatal]
  - Seizure [Recovered/Resolved]
  - Drug ineffective [Recovered/Resolved]
  - Kidney small [Unknown]
  - Renal atrophy [Unknown]

NARRATIVE: CASE EVENT DATE: 2016
